FAERS Safety Report 5080589-2 (Version None)
Quarter: 2006Q3

REPORT INFORMATION
  Report Type: 
  Country: None (occurrence: None)
  Receive Date: 20060815
  Receipt Date: 20060811
  Transmission Date: 20061208
  Serious: Yes (Congenital Anomaly)
  Sender: FDA-Public Use
  Company Number: US-GLAXOSMITHKLINE-A0616556A

PATIENT
  Sex: Female
  Weight: 2.7 kg

DRUGS (4)
  1. COMBIVIR [Suspect]
     Indication: HIV INFECTION
     Dosage: 2TAB PER DAY
     Dates: start: 20060208
  2. NELFINAVIR [Concomitant]
     Indication: HIV INFECTION
     Dosage: 2500MG PER DAY
     Dates: start: 20060208
  3. ISONIAZID [Concomitant]
     Indication: TUBERCULOSIS SKIN TEST POSITIVE
     Dosage: 300MG PER DAY
     Dates: start: 20050922
  4. PYRIDOXINE HCL [Concomitant]
     Indication: TUBERCULOSIS SKIN TEST POSITIVE
     Dosage: 50MG PER DAY
     Dates: start: 20050922

REACTIONS (3)
  - 17-HYDROXYPROGESTERONE INCREASED [None]
  - ADRENOGENITAL SYNDROME [None]
  - DRUG EXPOSURE DURING PREGNANCY [None]
